FAERS Safety Report 13407498 (Version 1)
Quarter: 2017Q2

REPORT INFORMATION
  Report Type: Spontaneous
  Country: CA (occurrence: CA)
  Receive Date: 20170405
  Receipt Date: 20170405
  Transmission Date: 20170830
  Serious: Yes (Hospitalization)
  Sender: FDA-Public Use
  Company Number: CA-HLSUS-2017-CA-000284

PATIENT
  Age: 54 Year
  Sex: Female

DRUGS (10)
  1. PERINDOPRIL [Concomitant]
     Active Substance: PERINDOPRIL
  2. PEG/PPG-17/4 DIMETHYL ETHER [Concomitant]
  3. LANTUS [Concomitant]
     Active Substance: INSULIN GLARGINE
  4. ACT SITAGLIPTIN [Concomitant]
  5. ATORVASTATIN [Concomitant]
     Active Substance: ATORVASTATIN
  6. CLOZAPINE. [Suspect]
     Active Substance: CLOZAPINE
     Indication: SCHIZOPHRENIA
     Dosage: 100 MG, 5 EVERY 1 DAY
     Route: 048
  7. LOXAPINE. [Concomitant]
     Active Substance: LOXAPINE
  8. METFORMIN [Concomitant]
     Active Substance: METFORMIN HYDROCHLORIDE
  9. AMLODIPINE [Concomitant]
     Active Substance: AMLODIPINE BESYLATE
  10. BISACODYL. [Concomitant]
     Active Substance: BISACODYL

REACTIONS (10)
  - Ureteric obstruction [Recovered/Resolved]
  - Abdominal pain [Recovered/Resolved]
  - Adrenal disorder [Recovered/Resolved]
  - Blood lactic acid increased [Recovered/Resolved]
  - Pancreatitis chronic [Recovered/Resolved]
  - Urine ketone body present [Recovered/Resolved]
  - Vomiting [Recovered/Resolved]
  - Blood glucose increased [Recovered/Resolved]
  - Constipation [Recovered/Resolved]
  - Glucose urine present [Recovered/Resolved]
